FAERS Safety Report 14876445 (Version 2)
Quarter: 2018Q2

REPORT INFORMATION
  Report Type: Report from Study
  Country: None (occurrence: US)
  Receive Date: 20180510
  Receipt Date: 20180614
  Transmission Date: 20180711
  Serious: Yes (Other)
  Sender: FDA-Public Use
  Company Number: US-ABBVIE-18P-163-2346268-00

PATIENT
  Sex: Male

DRUGS (10)
  1. VENCLEXTA [Suspect]
     Active Substance: VENETOCLAX
     Indication: CHRONIC LYMPHOCYTIC LEUKAEMIA
     Route: 048
  2. CHLORTAB [Concomitant]
     Active Substance: CHLORPHENIRAMINE MALEATE
     Indication: SINUS DISORDER
     Dosage: AS NEEDED
  3. ZOFRAN [Concomitant]
     Active Substance: ONDANSETRON HYDROCHLORIDE
     Indication: NAUSEA
  4. FLONASE [Concomitant]
     Active Substance: FLUTICASONE PROPIONATE
     Indication: SINUS DISORDER
     Dosage: 1/2/MG BEDTIME  AS NEEDED
     Route: 045
  5. HYDROCHLOROTHIAZIDE. [Concomitant]
     Active Substance: HYDROCHLOROTHIAZIDE
     Indication: BLOOD PRESSURE MEASUREMENT
  6. LORAZEPAM. [Concomitant]
     Active Substance: LORAZEPAM
     Indication: SLEEP DISORDER
  7. DAPSONE. [Concomitant]
     Active Substance: DAPSONE
     Indication: INFECTION PROPHYLAXIS
  8. BREO ELLIPTA [Concomitant]
     Active Substance: FLUTICASONE FUROATE\VILANTEROL TRIFENATATE
     Indication: PRODUCT USED FOR UNKNOWN INDICATION
     Route: 055
  9. ULTRAM [Concomitant]
     Active Substance: TRAMADOL HYDROCHLORIDE
     Indication: PAIN
     Dosage: OCCASIONALLY AS
  10. LORAZEPAM. [Concomitant]
     Active Substance: LORAZEPAM
     Indication: BLOOD PRESSURE MEASUREMENT
     Dosage: 1/2MG BEDTIME, SPRAY
     Route: 045

REACTIONS (14)
  - Chemotherapy [Unknown]
  - Laboratory test abnormal [Recovered/Resolved]
  - Decreased appetite [Recovered/Resolved]
  - White blood cell count increased [Unknown]
  - Haemoglobin decreased [Unknown]
  - Nasal septum deviation [Unknown]
  - Disease progression [Unknown]
  - Platelet count decreased [Unknown]
  - Blood pressure increased [Unknown]
  - Nausea [Recovered/Resolved]
  - Muscle spasms [Recovering/Resolving]
  - Asthma [Unknown]
  - Lymphadenopathy [Unknown]
  - Laboratory test abnormal [Unknown]
